FAERS Safety Report 12622906 (Version 2)
Quarter: 2016Q3

REPORT INFORMATION
  Report Type: Spontaneous
  Country: US (occurrence: US)
  Receive Date: 20160804
  Receipt Date: 20160817
  Transmission Date: 20161109
  Serious: No
  Sender: FDA-Public Use
  Company Number: US-009507513-1608USA001248

PATIENT
  Age: 39 Year
  Sex: Female

DRUGS (2)
  1. FOLLITROPIN BETA [Suspect]
     Active Substance: FOLLITROPIN
     Indication: OVULATION INDUCTION
     Dosage: 150 IU, ONCE DAILY
     Route: 058
     Dates: start: 20160731
  2. FOLLISTIM [Suspect]
     Active Substance: FOLLITROPIN
     Indication: OVULATION INDUCTION
     Dosage: 150 IU, ONCE A DAY
     Route: 058
     Dates: start: 20160731

REACTIONS (5)
  - Accidental exposure to product [Unknown]
  - Needle issue [Unknown]
  - Injury associated with device [Unknown]
  - Product contamination [Unknown]
  - Device malfunction [Unknown]

NARRATIVE: CASE EVENT DATE: 20160731
